FAERS Safety Report 12372624 (Version 2)
Quarter: 2016Q2

REPORT INFORMATION
  Report Type: Spontaneous
  Country: ES (occurrence: ES)
  Receive Date: 20160516
  Receipt Date: 20160620
  Transmission Date: 20160815
  Serious: Yes (Hospitalization)
  Sender: FDA-Public Use
  Company Number: ES-OTSUKA-2016_010289

PATIENT
  Age: 56 Year
  Sex: Female
  Weight: 44.4 kg

DRUGS (5)
  1. BUSULFAN. [Suspect]
     Active Substance: BUSULFAN
     Indication: STEM CELL TRANSPLANT
     Dosage: 3.2 MG/M2, QD (1/DAY), ON DAYS -5, -4 AND -3
     Route: 042
     Dates: start: 20150912, end: 20150914
  2. MELPHALAN [Suspect]
     Active Substance: MELPHALAN
     Indication: STEM CELL TRANSPLANT
     Dosage: 140 MG/M2, QD (1/DAY), ON DAY -2
     Route: 042
     Dates: start: 20150916, end: 20150916
  3. DEXAMETHASONE. [Suspect]
     Active Substance: DEXAMETHASONE
     Indication: STEM CELL TRANSPLANT
     Dosage: 40 MG DAILY, ON DAYS 1-4 AND 9-12 OF THE CYCLE, DURING 6 CYCLES
     Route: 048
     Dates: start: 20150205, end: 20160304
  4. VELCADE [Suspect]
     Active Substance: BORTEZOMIB
     Indication: STEM CELL TRANSPLANT
     Dosage: 1.7 MG/M2, ON DAYS 1, 4, 8 AND 11 (PERIOD OF REST ON DAYS 12 TO 28)
     Route: 058
     Dates: start: 20150205, end: 20160303
  5. LENALIDOMIDE [Suspect]
     Active Substance: LENALIDOMIDE
     Indication: STEM CELL TRANSPLANT
     Dosage: 25 MG DAILY, DAY 1 TO 21 OF THE CYCLE, WITH A PERIOD OF REST OF 7 DAYS, DURING 6 CYCLES
     Route: 048
     Dates: start: 20150205, end: 20150222

REACTIONS (1)
  - Respiratory tract infection [Unknown]

NARRATIVE: CASE EVENT DATE: 20160502
